FAERS Safety Report 7501017-0 (Version None)
Quarter: 2011Q2

REPORT INFORMATION
  Report Type: 
  Country: None (occurrence: None)
  Receive Date: 20110524
  Receipt Date: 20100524
  Transmission Date: 20111010
  Serious: No
  Sender: FDA-Public Use
  Company Number: US-NOVEN-ALL1-2010-03005

PATIENT

DRUGS (5)
  1. CLONIDINE [Concomitant]
     Dosage: .2 MG, 1X/DAY:QD
     Route: 048
     Dates: start: 20090101
  2. MELATONIN [Concomitant]
     Dosage: 3 MG, 1X/DAY:QD
     Route: 048
     Dates: start: 20090101
  3. DAYTRANA [Suspect]
     Dosage: 30 MG, 1X/DAY:QD
     Route: 062
     Dates: start: 20091101
  4. ABILIFY [Concomitant]
     Dosage: 2 MG, 1X/DAY:QD
     Route: 048
     Dates: start: 20090101
  5. DAYTRANA [Suspect]
     Dosage: 20 MG, 1X/DAY:QD
     Route: 062
     Dates: start: 20090101, end: 20091101

REACTIONS (5)
  - ACCIDENTAL EXPOSURE [None]
  - WRONG TECHNIQUE IN DRUG USAGE PROCESS [None]
  - NO ADVERSE EVENT [None]
  - PRODUCT QUALITY ISSUE [None]
  - OFF LABEL USE [None]
